FAERS Safety Report 7719818-2 (Version None)
Quarter: 2011Q3

REPORT INFORMATION
  Report Type: 
  Country: None (occurrence: None)
  Receive Date: 20110831
  Receipt Date: 20110818
  Transmission Date: 20111222
  Serious: No
  Sender: FDA-Public Use
  Company Number: US-BIOGENIDEC-2011BI024210

PATIENT
  Age: 60 Year
  Sex: Female

DRUGS (3)
  1. KEPPRA [Concomitant]
     Indication: CONVULSION
     Dates: start: 20100325
  2. TYSABRI [Suspect]
     Indication: MULTIPLE SCLEROSIS
     Route: 042
     Dates: start: 20110616
  3. LAMICTAL [Concomitant]
     Indication: CONVULSION
     Dates: start: 20100101

REACTIONS (8)
  - ABDOMINAL PAIN UPPER [None]
  - TREMOR [None]
  - DIARRHOEA [None]
  - DYSGRAPHIA [None]
  - PRURITUS [None]
  - ASTHENIA [None]
  - NAUSEA [None]
  - MEMORY IMPAIRMENT [None]
